FAERS Safety Report 16275171 (Version 2)
Quarter: 2020Q2

REPORT INFORMATION
  Report Type: Spontaneous
  Country: CH (occurrence: CH)
  Receive Date: 20190504
  Receipt Date: 20200409
  Transmission Date: 20200713
  Serious: Yes (Other)
  Sender: FDA-Public Use
  Company Number: PHHY2019CH063476

PATIENT
  Sex: Male

DRUGS (1)
  1. GILENYA [Suspect]
     Active Substance: FINGOLIMOD HYDROCHLORIDE
     Indication: MULTIPLE SCLEROSIS
     Dosage: UNK UKN, UNK
     Route: 065
     Dates: start: 201806

REACTIONS (5)
  - Respiratory syncytial virus infection [Unknown]
  - Viral vasculitis [Unknown]
  - General physical health deterioration [Unknown]
  - Herpes zoster infection neurological [Unknown]
  - Hemiplegia [Unknown]
